FAERS Safety Report 8789648 (Version 1)
Quarter: 2012Q4

REPORT INFORMATION
  Report Type: Spontaneous
  Country: US (occurrence: None)
  Receive Date: 20120910
  Receipt Date: 20120910
  Transmission Date: 20130627
  Serious: Yes (Other)
  Sender: FDA-Public Use
  Company Number: None

PATIENT
  Age: 62 Year
  Sex: Female
  Weight: 130 kg

DRUGS (1)
  1. IBANDRONATE SODIUM [Suspect]
     Indication: OSTEOPOROSIS
     Dates: start: 20120831, end: 20120831

REACTIONS (12)
  - Arthralgia [None]
  - Bone pain [None]
  - Abasia [None]
  - Abdominal pain upper [None]
  - Chest pain [None]
  - Abdominal pain [None]
  - Insomnia [None]
  - Gastrointestinal pain [None]
  - Back pain [None]
  - Neck pain [None]
  - Muscle spasms [None]
  - Musculoskeletal discomfort [None]
